FAERS Safety Report 6748900-1 (Version None)
Quarter: 2010Q2

REPORT INFORMATION
  Report Type: 
  Country: None (occurrence: None)
  Receive Date: 20100601
  Receipt Date: 20100517
  Transmission Date: 20101027
  Serious: Yes (Other)
  Sender: FDA-Public Use
  Company Number: US-ASTRAZENECA-2009SE17394

PATIENT
  Age: 22009 Day
  Sex: Male

DRUGS (5)
  1. SEROQUEL [Suspect]
     Route: 048
     Dates: start: 19981211
  2. EFFEXOR XR [Concomitant]
  3. REMERON [Concomitant]
  4. ASPIRIN [Concomitant]
  5. THEOPHYLLINE-SR [Concomitant]

REACTIONS (2)
  - DIABETES MELLITUS [None]
  - DIABETIC NEUROPATHY [None]
